FAERS Safety Report 10503707 (Version 1)
Quarter: 2014Q4

REPORT INFORMATION
  Report Type: Spontaneous
  Country: US (occurrence: None)
  Receive Date: 20141007
  Receipt Date: 20141007
  Transmission Date: 20150528
  Serious: Yes (Disabling)
  Sender: FDA-Public Use
  Company Number: None

PATIENT
  Age: 34 Year
  Sex: Male
  Weight: 79.38 kg

DRUGS (2)
  1. BADGER SPF 30 BABY SUNSCREEN CREAM [Suspect]
     Active Substance: ZINC OXIDE
     Indication: PROPHYLAXIS
     Dosage: AS NEEDED
     Dates: start: 20130501, end: 20140925
  2. BADGER SPF 30 BABY SUNSCREEN CREAM [Suspect]
     Active Substance: ZINC OXIDE
     Indication: SUNBURN
     Dosage: AS NEEDED
     Dates: start: 20130501, end: 20140925

REACTIONS (8)
  - Burning sensation [None]
  - Arthralgia [None]
  - Nail pitting [None]
  - Rash [None]
  - Pruritus [None]
  - Psoriasis [None]
  - Nail bed infection [None]
  - Localised infection [None]

NARRATIVE: CASE EVENT DATE: 20140901
